FAERS Safety Report 14831402 (Version 7)
Quarter: 2018Q2

REPORT INFORMATION
  Report Type: Spontaneous
  Country: BR (occurrence: BR)
  Receive Date: 20180501
  Receipt Date: 20180612
  Transmission Date: 20180711
  Serious: Yes (Death, Congenital Anomaly)
  Sender: FDA-Public Use
  Company Number: BR-BEH-2018090183

PATIENT
  Age: 0 Day
  Sex: Male
  Weight: 3 kg

DRUGS (1)
  1. RHOPHYLAC [Suspect]
     Active Substance: HUMAN RHO(D) IMMUNE GLOBULIN
     Indication: PRODUCT USED FOR UNKNOWN INDICATION
     Dosage: UNK UNK, TOT
     Route: 064

REACTIONS (8)
  - Congenital infection [Fatal]
  - Rhesus incompatibility [Fatal]
  - Pallor [Fatal]
  - Bradycardia foetal [Fatal]
  - Cardio-respiratory arrest [Fatal]
  - Hydrops foetalis [Fatal]
  - Anaemia neonatal [Fatal]
  - Abdominal distension [Fatal]

NARRATIVE: CASE EVENT DATE: 20180318
